FAERS Safety Report 16173484 (Version 1)
Quarter: 2020Q3

REPORT INFORMATION
  Report Type: Report from Study
  Country: US (occurrence: US)
  Receive Date: 20190409
  Receipt Date: 20190409
  Transmission Date: 20201104
  Serious: Yes (Other)
  Sender: FDA-Public Use
  Company Number: US-ROCHE-2296780

PATIENT

DRUGS (2)
  1. OSELTAMIVIR [Suspect]
     Active Substance: OSELTAMIVIR
     Indication: INFLUENZA
     Route: 048
  2. PIMODIVIR. [Suspect]
     Active Substance: PIMODIVIR
     Indication: INFLUENZA
     Route: 048

REACTIONS (13)
  - Hypokalaemia [Unknown]
  - White blood cells urine positive [Unknown]
  - Neutrophil count decreased [Unknown]
  - Hypophosphataemia [Unknown]
  - Glucose urine present [Unknown]
  - Blood creatine phosphokinase increased [Unknown]
  - Hyponatraemia [Unknown]
  - Hypernatraemia [Unknown]
  - Red blood cells urine positive [Unknown]
  - Alanine aminotransferase increased [Unknown]
  - Blood cholesterol increased [Unknown]
  - Hyperkalaemia [Unknown]
  - Protein urine present [Unknown]
